FAERS Safety Report 16258419 (Version 7)
Quarter: 2019Q4

REPORT INFORMATION
  Report Type: Report from Study
  Country: US (occurrence: US)
  Receive Date: 20190430
  Receipt Date: 20191114
  Transmission Date: 20200122
  Serious: Yes (Hospitalization)
  Sender: FDA-Public Use
  Company Number: US-ACTELION-A-NJ2019-188500

PATIENT
  Age: 78 Year
  Sex: Female
  Weight: 68.03 kg

DRUGS (3)
  1. OPSUMIT [Suspect]
     Active Substance: MACITENTAN
     Indication: PULMONARY ARTERIAL HYPERTENSION
     Dosage: 10 MG, QD
     Route: 048
  2. ELIQUIS [Concomitant]
     Active Substance: APIXABAN
  3. ADEMPAS [Concomitant]
     Active Substance: RIOCIGUAT

REACTIONS (19)
  - Vomiting [Unknown]
  - Rhinorrhoea [Unknown]
  - Sinusitis [Unknown]
  - Upper respiratory tract congestion [Recovering/Resolving]
  - Asthenia [Unknown]
  - Blood pressure increased [Unknown]
  - Retching [Not Recovered/Not Resolved]
  - Fatigue [Unknown]
  - Rales [Unknown]
  - Angioplasty [Unknown]
  - Seasonal allergy [Unknown]
  - Nasal congestion [Unknown]
  - Dehydration [Unknown]
  - Malaise [Unknown]
  - Lacrimation increased [Unknown]
  - Gastroenteritis [Unknown]
  - Nausea [Not Recovered/Not Resolved]
  - Dyspnoea [Unknown]
  - Cough [Unknown]

NARRATIVE: CASE EVENT DATE: 20190406
